FAERS Safety Report 12468091 (Version 1)
Quarter: 2016Q2

REPORT INFORMATION
  Report Type: Spontaneous
  Country: CH (occurrence: CH)
  Receive Date: 20160615
  Receipt Date: 20160615
  Transmission Date: 20160815
  Serious: Yes (Hospitalization)
  Sender: FDA-Public Use
  Company Number: CH-PFIZER INC-2016298311

PATIENT
  Age: 57 Year
  Sex: Male

DRUGS (2)
  1. NEBIVOLOL /01339102/ [Concomitant]
     Active Substance: NEBIVOLOL
     Indication: HYPERTENSION
     Dosage: 2.5 MG, QD
     Route: 048
     Dates: start: 2012
  2. PANTOZOL [Suspect]
     Active Substance: PANTOPRAZOLE SODIUM
     Indication: GASTROOESOPHAGEAL REFLUX DISEASE
     Dosage: 40 MG, ALTERNATE DAY
     Route: 048
     Dates: start: 201312, end: 201401

REACTIONS (4)
  - Jaundice [Recovered/Resolved]
  - Antinuclear antibody increased [Recovered/Resolved]
  - Autoimmune hepatitis [Recovering/Resolving]
  - Transaminases increased [Recovering/Resolving]

NARRATIVE: CASE EVENT DATE: 201312
